FAERS Safety Report 6027903-9 (Version None)
Quarter: 2008Q4

REPORT INFORMATION
  Report Type: 
  Country: None (occurrence: None)
  Receive Date: 20081230
  Receipt Date: 20081216
  Transmission Date: 20090506
  Serious: Yes (Hospitalization)
  Sender: FDA-Public Use
  Company Number: GXKR2008CZ12121

PATIENT
  Age: 40 Year
  Sex: Male
  Weight: 86 kg

DRUGS (1)
  1. XORIMAX (NGX) (CEFUROXIME) UNKNOWN, 500MG [Suspect]
     Indication: PHARYNGITIS
     Dosage: 500MG, BID, ORAL
     Route: 048
     Dates: start: 20081128, end: 20081205

REACTIONS (3)
  - ACUTE CORONARY SYNDROME [None]
  - ELECTROCARDIOGRAM ST SEGMENT ELEVATION [None]
  - VASOSPASM [None]
